FAERS Safety Report 5818693-0 (Version None)
Quarter: 2008Q3

REPORT INFORMATION
  Report Type: 
  Country: None (occurrence: None)
  Receive Date: 20080723
  Receipt Date: 20080715
  Transmission Date: 20090109
  Serious: Yes (Hospitalization)
  Sender: FDA-Public Use
  Company Number: US-JNJFOC-20080204048

PATIENT
  Sex: Female
  Weight: 100.25 kg

DRUGS (3)
  1. REMICADE [Suspect]
     Route: 042
  2. REMICADE [Suspect]
     Indication: CROHN'S DISEASE
     Route: 042
  3. UNSPECIFIED PREMEDICATION [Concomitant]

REACTIONS (4)
  - ATELECTASIS [None]
  - CARDIOMEGALY [None]
  - PNEUMONIA [None]
  - SMALL INTESTINAL OBSTRUCTION [None]
